FAERS Safety Report 9065759 (Version 1)
Quarter: 2013Q1

REPORT INFORMATION
  Report Type: Report from Study
  Country: US (occurrence: US)
  Receive Date: 20130131
  Receipt Date: 20130131
  Transmission Date: 20140127
  Serious: No
  Sender: FDA-Public Use
  Company Number: US-ABBOTT-12P-163-1023524-00

PATIENT
  Age: 45 Year
  Sex: Female

DRUGS (28)
  1. HUMIRA [Suspect]
     Indication: PSORIATIC ARTHROPATHY
     Dosage: INITIAL DOSE
     Dates: start: 20121213
  2. LYRICA [Concomitant]
     Indication: FIBROMYALGIA
  3. NUVIGIL [Concomitant]
     Indication: SUPPLEMENTATION THERAPY
  4. CLONAZEPAM [Concomitant]
     Indication: ANXIETY
     Dosage: 1MG TWICE A DAY AND 0.5MG AS NEEDED
  5. PRISTIQ [Concomitant]
     Indication: DEPRESSION
  6. TRAMADOL [Concomitant]
     Indication: PAIN
     Dosage: EVERY 4-6 HOURS
  7. HYDROCODONE [Concomitant]
     Indication: PAIN
     Dosage: 5-325MG EVERY 4-6 HOURS
  8. LIDODERM [Concomitant]
     Indication: PAIN
     Dosage: PATCH
  9. FLEXERIL [Concomitant]
     Indication: PRODUCT USED FOR UNKNOWN INDICATION
  10. FISH OIL [Concomitant]
     Indication: PRODUCT USED FOR UNKNOWN INDICATION
  11. SELENIUM [Concomitant]
     Indication: PRODUCT USED FOR UNKNOWN INDICATION
  12. SINGULAIR [Concomitant]
     Indication: HYPERSENSITIVITY
  13. SINGULAIR [Concomitant]
     Indication: ASTHMA
  14. PEPCID [Concomitant]
     Indication: GASTROOESOPHAGEAL REFLUX DISEASE
  15. HYDROXYZINE [Concomitant]
     Indication: PRURITUS
  16. SPIRONOLACTONE [Concomitant]
     Indication: ACNE
  17. MUCINEX D [Concomitant]
     Indication: HYPERSENSITIVITY
  18. ASTELIN [Concomitant]
     Indication: HYPERSENSITIVITY
     Dosage: PER NOSTRIL
  19. OMNARIS [Concomitant]
     Indication: HYPERSENSITIVITY
     Dosage: PER NOSTRIL
  20. SPIRIVA [Concomitant]
     Indication: PRODUCT USED FOR UNKNOWN INDICATION
     Dosage: AT NIGHT, INHALER
  21. ADVAIR HFA [Concomitant]
     Indication: PRODUCT USED FOR UNKNOWN INDICATION
     Dosage: 115/21MCG
  22. PROVENTIL [Concomitant]
     Indication: ASTHMA
     Dosage: INHALER
  23. BUDESONIDE 2ML WITH XOPENEX 3MG [Concomitant]
     Indication: ASTHMA
     Dosage: VIA NEBULIZER
  24. DESONIDE [Concomitant]
     Indication: PSORIASIS
     Dosage: LOTION
  25. UREA [Concomitant]
     Indication: PSORIASIS
  26. VIT D [Concomitant]
     Indication: PRODUCT USED FOR UNKNOWN INDICATION
     Dosage: WEEKLY
  27. OVER THE COUNTER EYE DROPS [Concomitant]
     Indication: HYPERSENSITIVITY
  28. ABILIFY [Concomitant]
     Indication: DEPRESSION

REACTIONS (1)
  - Hypersensitivity [Not Recovered/Not Resolved]
